FAERS Safety Report 26132677 (Version 1)
Quarter: 2025Q4

REPORT INFORMATION
  Report Type: Spontaneous
  Country: JP (occurrence: JP)
  Receive Date: 20251208
  Receipt Date: 20251208
  Transmission Date: 20260118
  Serious: Yes (Death, Other)
  Sender: MERCK SHARP & DOHME LLC
  Company Number: JP-MSD-M2023-44325

PATIENT
  Age: 69 Year
  Sex: Male

DRUGS (2)
  1. KEYTRUDA [Suspect]
     Active Substance: PEMBROLIZUMAB
     Indication: Papillary renal cell carcinoma
     Dosage: LAST ADMIN DATE: IN 2023
     Route: 041
     Dates: start: 20230210
  2. LENVIMA [Suspect]
     Active Substance: LENVATINIB
     Indication: Papillary renal cell carcinoma
     Dosage: CONCENTRATION: 10 MILLIGRAM?LAST ADMIN DATE: IN 2023
     Route: 048
     Dates: start: 20230210

REACTIONS (2)
  - Malignant neoplasm progression [Fatal]
  - Immune-mediated dermatitis [Unknown]

NARRATIVE: CASE EVENT DATE: 20230101
